FAERS Safety Report 6023841-6 (Version None)
Quarter: 2008Q4

REPORT INFORMATION
  Report Type: 
  Country: None (occurrence: None)
  Receive Date: 20081230
  Receipt Date: 20081215
  Transmission Date: 20090506
  Serious: Yes (Death)
  Sender: FDA-Public Use
  Company Number: US-PFIZER INC-2008153583

PATIENT
  Age: 47 Year
  Sex: Female

DRUGS (4)
  1. ZIPRASIDONE HCL [Suspect]
     Route: 048
  2. BUPROPION [Suspect]
     Route: 048
  3. VENLAFAXINE [Suspect]
     Route: 048
  4. ETHANOL [Suspect]
     Route: 048

REACTIONS (1)
  - COMPLETED SUICIDE [None]
